FAERS Safety Report 18913186 (Version 1)
Quarter: 2021Q1

REPORT INFORMATION
  Report Type: Spontaneous
  Country: GR (occurrence: GR)
  Receive Date: 20210219
  Receipt Date: 20210219
  Transmission Date: 20210420
  Serious: Yes (Other)
  Sender: FDA-Public Use
  Company Number: GR-009507513-2102GRC005314

PATIENT
  Age: 67 Year
  Sex: Female

DRUGS (3)
  1. CELESTONE CHRONODOSE [Suspect]
     Active Substance: BETAMETHASONE ACETATE\BETAMETHASONE SODIUM PHOSPHATE
     Dosage: UNK
     Dates: start: 2021
  2. CELESTONE CHRONODOSE [Suspect]
     Active Substance: BETAMETHASONE ACETATE\BETAMETHASONE SODIUM PHOSPHATE
     Dosage: UNK
     Dates: start: 202101
  3. CELESTONE CHRONODOSE [Suspect]
     Active Substance: BETAMETHASONE ACETATE\BETAMETHASONE SODIUM PHOSPHATE
     Indication: TENDONITIS
     Dosage: UNK
     Dates: start: 202101

REACTIONS (13)
  - Pain [Unknown]
  - Pain in jaw [Unknown]
  - Anaphylactic reaction [Recovered/Resolved]
  - Eye pain [Unknown]
  - Mouth swelling [Unknown]
  - Oral mucosal blistering [Unknown]
  - Erythema [Unknown]
  - Swelling [Unknown]
  - Lip swelling [Unknown]
  - Ear pain [Unknown]
  - Arrhythmia [Recovered/Resolved]
  - Respiratory disorder [Unknown]
  - Toothache [Unknown]

NARRATIVE: CASE EVENT DATE: 202101
